FAERS Safety Report 7496103-8 (Version None)
Quarter: 2011Q2

REPORT INFORMATION
  Report Type: 
  Country: None (occurrence: None)
  Receive Date: 20110513
  Receipt Date: 20110429
  Transmission Date: 20111010
  Serious: Yes (Death, Hospitalization)
  Sender: FDA-Public Use
  Company Number: CL-303-2011

PATIENT
  Age: 52 Year
  Sex: Male

DRUGS (2)
  1. CHEMOTHERAPY [Suspect]
     Indication: NON-HODGKIN'S LYMPHOMA
  2. CIPROFLOXACIN [Suspect]
     Dosage: INTRAVENOUS
     Route: 042

REACTIONS (10)
  - PRODUCT QUALITY ISSUE [None]
  - NAUSEA [None]
  - FALL [None]
  - RESPIRATORY FAILURE [None]
  - HYPERSENSITIVITY [None]
  - BLISTER [None]
  - ABDOMINAL PAIN UPPER [None]
  - BLOOD COUNT ABNORMAL [None]
  - DYSPEPSIA [None]
  - SKIN DISCOLOURATION [None]
